FAERS Safety Report 5290175-7 (Version None)
Quarter: 2007Q2

REPORT INFORMATION
  Report Type: 
  Country: None (occurrence: None)
  Receive Date: 20070402
  Receipt Date: 20070327
  Transmission Date: 20071010
  Serious: Yes (Other)
  Sender: FDA-Public Use
  Company Number: 238995

PATIENT
  Age: 34 Year
  Sex: Female
  Weight: 64.6 kg

DRUGS (1)
  1. OMALIZUMAB (OMALIZUMAB)  PWDR + SOLVENT, INJECTION SOLN, 150MG [Suspect]
     Indication: ASTHMA
     Dosage: 150 MG, Q4W, SUBCUTANEOUS
     Route: 058
     Dates: start: 20040602

REACTIONS (1)
  - ANAPHYLACTIC REACTION [None]
